FAERS Safety Report 9536906 (Version 2)
Quarter: 2013Q4

REPORT INFORMATION
  Report Type: Spontaneous
  Country: JP (occurrence: JP)
  Receive Date: 20130919
  Receipt Date: 20131018
  Transmission Date: 20140711
  Serious: Yes (Other)
  Sender: FDA-Public Use
  Company Number: JP-ASTRAZENECA-2013SE69780

PATIENT
  Age: 85 Year
  Sex: Female

DRUGS (2)
  1. SEROQUEL [Suspect]
     Dosage: ONE HALF OF A 25-MG TABLET, 12.5 MG UID/QD
     Route: 048
  2. YOKUKAN-SAN(HERBAL EXTRACT NOS) [Concomitant]
     Route: 048

REACTIONS (2)
  - Micturition disorder [Unknown]
  - Intentional drug misuse [Unknown]
